FAERS Safety Report 6142374-X (Version None)
Quarter: 2009Q2

REPORT INFORMATION
  Report Type: 
  Country: None (occurrence: None)
  Receive Date: 20090403
  Receipt Date: 20071121
  Transmission Date: 20091009
  Serious: Yes (Death)
  Sender: FDA-Public Use
  Company Number: US-ASTRAZENECA-2006UW21623

PATIENT
  Age: 21008 Day
  Sex: Male
  Weight: 124.7 kg

DRUGS (4)
  1. SEROQUEL [Suspect]
     Route: 048
     Dates: start: 20050601, end: 20051121
  2. SEROQUEL [Suspect]
     Dosage: 25MG- 50MG
     Route: 048
     Dates: start: 20050601
  3. ARICEPT [Concomitant]
  4. TRAZODONE [Concomitant]

REACTIONS (4)
  - ABNORMAL BEHAVIOUR [None]
  - CARDIOVASCULAR DISORDER [None]
  - HYPERGLYCAEMIA [None]
  - HYPERTENSION [None]
